FAERS Safety Report 7364293-3 (Version None)
Quarter: 2011Q1

REPORT INFORMATION
  Report Type: 
  Country: None (occurrence: None)
  Receive Date: 20110321
  Receipt Date: 20110314
  Transmission Date: 20110831
  Serious: Yes (Other)
  Sender: FDA-Public Use
  Company Number: B0705692A

PATIENT
  Sex: Female

DRUGS (3)
  1. DEROXAT [Suspect]
     Dosage: 20MG PER DAY
     Route: 048
     Dates: start: 20100920
  2. OXYNORM [Suspect]
     Dosage: 150MG PER DAY
     Route: 042
     Dates: start: 20100920, end: 20101004
  3. LEXOMIL [Concomitant]
     Dosage: .25UNIT PER DAY
     Route: 048

REACTIONS (5)
  - PRURITUS [None]
  - SKIN LESION [None]
  - RASH MACULO-PAPULAR [None]
  - PETECHIAE [None]
  - ERYTHEMA [None]
